FAERS Safety Report 7476484-1 (Version None)
Quarter: 2011Q2

REPORT INFORMATION
  Report Type: 
  Country: None (occurrence: None)
  Receive Date: 20110510
  Receipt Date: 20110510
  Transmission Date: 20111010
  Serious: No
  Sender: FDA-Public Use
  Company Number: None

PATIENT
  Sex: Male
  Weight: 81.9 kg

DRUGS (1)
  1. INTRON A [Suspect]
     Dosage: 42 IU

REACTIONS (2)
  - SEASONAL ALLERGY [None]
  - NASAL CONGESTION [None]
